FAERS Safety Report 6429745-9 (Version None)
Quarter: 2009Q4

REPORT INFORMATION
  Report Type: 
  Country: None (occurrence: None)
  Receive Date: 20091106
  Receipt Date: 20091030
  Transmission Date: 20100525
  Serious: Yes (Other)
  Sender: FDA-Public Use
  Company Number: US-TEVA-142709USA

PATIENT
  Sex: Female
  Weight: 48.124 kg

DRUGS (5)
  1. COPAXONE [Suspect]
     Indication: MULTIPLE SCLEROSIS
     Dosage: QD (DAILY)
     Route: 058
     Dates: start: 19971101
  2. BUPROPION HYDROCHLORIDE [Concomitant]
     Route: 048
     Dates: start: 19950101
  3. OBETROL [Concomitant]
     Route: 048
     Dates: start: 19990101
  4. CLIMORA [Concomitant]
     Indication: HORMONE REPLACEMENT THERAPY
  5. LEXAPRO [Concomitant]
     Route: 048
     Dates: start: 20030101

REACTIONS (3)
  - BURNS THIRD DEGREE [None]
  - INJECTION SITE ERYTHEMA [None]
  - INJECTION SITE NECROSIS [None]
